FAERS Safety Report 23287601 (Version 1)
Quarter: 2023Q4

REPORT INFORMATION
  Report Type: Spontaneous
  Country: US (occurrence: None)
  Receive Date: 20231212
  Receipt Date: 20231212
  Transmission Date: 20240109
  Serious: Yes (Hospitalization)
  Sender: FDA-Public Use
  Company Number: None

PATIENT
  Age: 66 Year
  Sex: Female
  Weight: 49.9 kg

DRUGS (7)
  1. CARBOPLATIN [Suspect]
     Active Substance: CARBOPLATIN
     Dates: end: 20231101
  2. ALIMTA [Concomitant]
     Active Substance: PEMETREXED DISODIUM
  3. DEXAMETHASONE [Concomitant]
  4. FOLIC ACID [Concomitant]
  5. PROCHLORPERAZINE [Concomitant]
  6. VITAMIN B12 [Concomitant]
     Active Substance: CYANOCOBALAMIN
  7. ALIMTA [Suspect]
     Active Substance: PEMETREXED DISODIUM
     Dates: end: 20231102

REACTIONS (8)
  - Fatigue [None]
  - Nausea [None]
  - Anaemia [None]
  - Hypokalaemia [None]
  - Diarrhoea [None]
  - Sepsis [None]
  - Escherichia infection [None]
  - Clostridium difficile infection [None]

NARRATIVE: CASE EVENT DATE: 20231104
